FAERS Safety Report 7127553-7 (Version None)
Quarter: 2010Q4

REPORT INFORMATION
  Report Type: 
  Country: None (occurrence: None)
  Receive Date: 20101129
  Receipt Date: 20100708
  Transmission Date: 20110411
  Serious: No
  Sender: FDA-Public Use
  Company Number: US-PFIZER INC-2010058812

PATIENT
  Sex: Male
  Weight: 78.458 kg

DRUGS (8)
  1. VIAGRA [Suspect]
     Indication: ERECTILE DYSFUNCTION
     Dosage: 100 MG, AS NEEDED
     Route: 048
  2. VIAGRA [Suspect]
  3. SINEMET [Concomitant]
     Indication: RESTLESS LEGS SYNDROME
     Dosage: UNK
  4. PLAVIX [Concomitant]
     Indication: PERIPHERAL ARTERIAL OCCLUSIVE DISEASE
     Dosage: 75 MG DAILY
     Route: 048
  5. FOLIC ACID [Concomitant]
     Indication: PERIPHERAL ARTERIAL OCCLUSIVE DISEASE
     Dosage: 1 MG DAILY
     Route: 048
  6. ZOCOR [Concomitant]
     Indication: BLOOD CHOLESTEROL INCREASED
     Dosage: 20 MG DAILY
     Route: 048
  7. OMEPRAZOLE [Concomitant]
     Indication: GASTROOESOPHAGEAL REFLUX DISEASE
     Dosage: 20 MG DAILY
     Route: 048
  8. MELOXICAM [Concomitant]
     Indication: ARTHRITIS
     Dosage: 50 MG DAILY
     Route: 048

REACTIONS (2)
  - ANXIETY [None]
  - DRUG INEFFECTIVE [None]
